FAERS Safety Report 16350503 (Version 2)
Quarter: 2019Q2

REPORT INFORMATION
  Report Type: Spontaneous
  Country: ES (occurrence: ES)
  Receive Date: 20190524
  Receipt Date: 20190528
  Transmission Date: 20190711
  Serious: Yes (Other)
  Sender: FDA-Public Use
  Company Number: ES-ASTRAZENECA-2019SE75685

PATIENT
  Age: 70 Year
  Sex: Male

DRUGS (1)
  1. EDISTRIDE [Suspect]
     Active Substance: DAPAGLIFLOZIN
     Indication: DIABETES MELLITUS
     Dosage: 10.0MG UNKNOWN
     Route: 048
     Dates: start: 201811

REACTIONS (1)
  - Necrosis ischaemic [Not Recovered/Not Resolved]
